FAERS Safety Report 15040942 (Version 2)
Quarter: 2018Q2

REPORT INFORMATION
  Report Type: Spontaneous
  Country: BE (occurrence: BE)
  Receive Date: 20180620
  Receipt Date: 20180621
  Transmission Date: 20180711
  Serious: Yes (Other)
  Sender: FDA-Public Use
  Company Number: BE-TEVA-2018-BE-904085

PATIENT
  Age: 72 Year
  Sex: Female
  Weight: 72 kg

DRUGS (7)
  1. ZOFRAN [Concomitant]
     Active Substance: ONDANSETRON HYDROCHLORIDE
     Dosage: 2 X 1 CO PER DAY ON DAY 2 AND 3 AFTER CHEMOTHERAPY
     Route: 048
     Dates: start: 20180302
  2. OXALIPLATIN INJECTION 50MG/10 ML+100MG/20ML [Suspect]
     Active Substance: OXALIPLATIN
     Indication: RECTOSIGMOID CANCER
     Dosage: 130 MG/M??200.19 MG OXALIPLATIN IN 500 ML GLUCOSE 5%
     Route: 042
     Dates: start: 20180302
  3. XELODA [Concomitant]
     Active Substance: CAPECITABINE
     Dosage: 3500 MILLIGRAM DAILY; DIVIDED INTO 2 GIFTS FOR 14 DAYS, FOLLOWED BY 1 WEEK WITHOUT GIFTS.
     Route: 048
     Dates: start: 20180302
  4. STILNOCT [Concomitant]
     Active Substance: ZOLPIDEM TARTRATE
     Dosage: 10 MILLIGRAM DAILY;
     Route: 048
  5. SOLU-MEDROL [Concomitant]
     Active Substance: METHYLPREDNISOLONE SODIUM SUCCINATE
     Route: 042
     Dates: start: 20180302
  6. ASAFLOW [Concomitant]
     Active Substance: ASPIRIN
     Dosage: 80 MILLIGRAM DAILY;
     Route: 048
  7. ONDANSETRON [Concomitant]
     Active Substance: ONDANSETRON
     Route: 042
     Dates: start: 20180302

REACTIONS (4)
  - Hypotension [Recovered/Resolved]
  - Bronchospasm [Recovered/Resolved]
  - Laryngospasm [Recovered/Resolved]
  - Muscle spasms [Recovered/Resolved]

NARRATIVE: CASE EVENT DATE: 20180323
